FAERS Safety Report 15500815 (Version 2)
Quarter: 2018Q4

REPORT INFORMATION
  Report Type: Report from Study
  Country: DE (occurrence: DE)
  Receive Date: 20181015
  Receipt Date: 20181218
  Transmission Date: 20190205
  Serious: Yes (Hospitalization, Other)
  Sender: FDA-Public Use
  Company Number: DE-TAKEDA-2018TUS029583

PATIENT
  Sex: Male
  Weight: 57 kg

DRUGS (4)
  1. PARACETAMOL [Concomitant]
     Active Substance: ACETAMINOPHEN
     Dosage: 500 MG, UNK
     Dates: start: 20180612
  2. VEDOLIZUMAB [Suspect]
     Active Substance: VEDOLIZUMAB
     Indication: COLITIS ULCERATIVE
     Dosage: UNK
     Route: 065
     Dates: start: 20170421, end: 20171107
  3. MUCOFALK                           /01328803/ [Concomitant]
     Active Substance: HERBALS\PLANTAGO OVATA LEAF
     Indication: COLITIS ULCERATIVE
     Dosage: 3.25 G, UNK
  4. PANTOZOL [Concomitant]
     Active Substance: PANTOPRAZOLE SODIUM
     Dosage: 40 MG, UNK

REACTIONS (3)
  - Laparoscopic surgery [Recovered/Resolved]
  - Therapy non-responder [Unknown]
  - Colitis ulcerative [Recovered/Resolved with Sequelae]

NARRATIVE: CASE EVENT DATE: 20171130
